FAERS Safety Report 7599123-8 (Version None)
Quarter: 2011Q3

REPORT INFORMATION
  Report Type: 
  Country: None (occurrence: None)
  Receive Date: 20110711
  Receipt Date: 20090611
  Transmission Date: 20111222
  Serious: Yes (Hospitalization, Other)
  Sender: FDA-Public Use
  Company Number: US-BAYER-200923281NA

PATIENT
  Age: 69 Year
  Sex: Female
  Weight: 57 kg

DRUGS (27)
  1. ACETYLSALICYLIC ACID SRT [Concomitant]
     Dosage: 81 MG, QD
     Route: 048
  2. DIGOXIN [Concomitant]
     Dosage: 0.125 MG, QD
     Route: 048
  3. CARDIZEM [Concomitant]
     Dosage: UNK
     Route: 042
     Dates: start: 20070201
  4. FLAGYL [Concomitant]
     Dosage: 250 MG, UNK
     Route: 048
  5. NIPRIDE [Concomitant]
     Dosage: UNK
     Route: 042
     Dates: start: 20070320
  6. TRASYLOL [Suspect]
     Indication: AORTIC VALVE REPLACEMENT
     Dosage: 200 ML LOADING DOSE
     Route: 042
     Dates: start: 20070320, end: 20070320
  7. METOPROLOL TARTRATE [Concomitant]
     Dosage: 25 MG, BID
     Route: 048
  8. WARFARIN SODIUM [Concomitant]
     Dosage: 7.5 MG, QD
     Route: 048
  9. TRASYLOL [Suspect]
     Indication: PRODUCT USED FOR UNKNOWN INDICATION
     Dosage: 1 ML INITIAL TEST DOSE
     Route: 042
     Dates: start: 20070320, end: 20070320
  10. TRASYLOL [Suspect]
     Indication: COX-MAZE PROCEDURE
     Dosage: 50 ML/HR INFUSION
     Route: 042
     Dates: start: 20070320, end: 20070320
  11. AMITRIPTYLINE HCL [Concomitant]
     Dosage: 25 MG, QD
     Route: 048
  12. LIPITOR [Concomitant]
     Dosage: 20 MG, QD
     Route: 048
  13. MAGNESIUM SULFATE [Concomitant]
     Dosage: UNK
     Route: 042
     Dates: start: 20070320, end: 20070320
  14. LASIX [Concomitant]
     Dosage: 20 MG, QD
     Route: 048
  15. VANCOMYCIN [Concomitant]
     Dosage: 1 G, UNK
     Route: 042
     Dates: start: 20070321
  16. DILANTIN [Concomitant]
     Dosage: UNK
     Route: 042
     Dates: start: 20070321
  17. PLASMA [Concomitant]
     Dosage: 2 U, ONCE
     Route: 042
     Dates: start: 20070320
  18. LISINOPRIL [Concomitant]
     Dosage: 20 MG, QD
     Route: 048
  19. AVANDIA [Concomitant]
     Dosage: 8 MG, QD
     Route: 048
  20. ELAVIL [Concomitant]
     Dosage: 25 MG, QD
     Route: 048
  21. HEPARIN [Concomitant]
     Dosage: UNK
     Route: 042
     Dates: start: 20070320, end: 20070320
  22. PRIMACOR [Concomitant]
     Dosage: UNK
     Route: 042
     Dates: start: 20070320, end: 20070320
  23. CRYOPRECIPITATES [Concomitant]
     Dosage: 20 U, ONCE
     Route: 042
     Dates: start: 20070320
  24. INSULIN [Concomitant]
     Dosage: UNK
     Route: 058
  25. TRAMADOL HCL [Concomitant]
     Dosage: 50 MG, TID
     Route: 048
  26. AMIODARONE HCL [Concomitant]
     Dosage: UNK
     Route: 042
     Dates: start: 20070323
  27. RED BLOOD CELLS [Concomitant]
     Dosage: 3 U, ONCE
     Route: 042
     Dates: start: 20070320

REACTIONS (13)
  - EMOTIONAL DISTRESS [None]
  - STRESS [None]
  - INJURY [None]
  - ANXIETY [None]
  - RENAL INJURY [None]
  - FEAR [None]
  - PAIN [None]
  - MULTI-ORGAN FAILURE [None]
  - UNEVALUABLE EVENT [None]
  - CEREBROVASCULAR ACCIDENT [None]
  - RENAL FAILURE [None]
  - RENAL IMPAIRMENT [None]
  - ANHEDONIA [None]
